FAERS Safety Report 8534282-1 (Version None)
Quarter: 2012Q3

REPORT INFORMATION
  Report Type: 
  Country: None (occurrence: None)
  Receive Date: 20120724
  Receipt Date: 20120717
  Transmission Date: 20120928
  Serious: Yes (Other)
  Sender: FDA-Public Use
  Company Number: US-VERTEX PHARMACEUTICALS INC.-AE-2012-010663

PATIENT
  Sex: Male
  Weight: 88.9 kg

DRUGS (3)
  1. PEG-INTRON [Concomitant]
     Indication: HEPATITIS C
     Route: 058
     Dates: start: 20120101
  2. INCIVEK [Suspect]
     Indication: HEPATITIS C
     Route: 048
     Dates: start: 20120101
  3. RIBASPHERE [Concomitant]
     Indication: HEPATITIS C
     Route: 048
     Dates: start: 20120101

REACTIONS (16)
  - MOOD SWINGS [None]
  - DYSPNOEA [None]
  - COUGH [None]
  - DEPRESSION [None]
  - ANAEMIA [None]
  - OEDEMA [None]
  - MUSCLE SPASMS [None]
  - RASH GENERALISED [None]
  - DIARRHOEA [None]
  - VOMITING [None]
  - BLINDNESS [None]
  - ANXIETY [None]
  - NAUSEA [None]
  - FATIGUE [None]
  - HEADACHE [None]
  - DECREASED APPETITE [None]
